FAERS Safety Report 7004406-6 (Version None)
Quarter: 2010Q3

REPORT INFORMATION
  Report Type: 
  Country: None (occurrence: None)
  Receive Date: 20100921
  Receipt Date: 20100910
  Transmission Date: 20110219
  Serious: No
  Sender: FDA-Public Use
  Company Number: US-BIOGENIDEC-2010BI031916

PATIENT
  Sex: Female

DRUGS (3)
  1. TYSABRI [Suspect]
     Indication: MULTIPLE SCLEROSIS
     Route: 042
     Dates: start: 20041201, end: 20041201
  2. TYSABRI [Suspect]
     Route: 042
     Dates: start: 20050101, end: 20050101
  3. TYSABRI [Suspect]
     Route: 042
     Dates: start: 20100401

REACTIONS (9)
  - COGNITIVE DISORDER [None]
  - DIZZINESS [None]
  - DYSPNOEA [None]
  - HEADACHE [None]
  - HYPOAESTHESIA [None]
  - LOSS OF CONSCIOUSNESS [None]
  - NAUSEA [None]
  - STRESS [None]
  - VISION BLURRED [None]
